FAERS Safety Report 25040563 (Version 1)
Quarter: 2025Q1

REPORT INFORMATION
  Report Type: Report from Study
  Country: US (occurrence: US)
  Receive Date: 20250305
  Receipt Date: 20250305
  Transmission Date: 20250409
  Serious: Yes (Other)
  Sender: ALEXION PHARMACEUTICALS
  Company Number: US-AstraZeneca-CH-00816248A

PATIENT

DRUGS (1)
  1. OLAPARIB [Suspect]
     Active Substance: OLAPARIB
     Indication: Pancreatic carcinoma
     Dosage: 200 MILLIGRAM, BID

REACTIONS (5)
  - Hepatic neoplasm [Unknown]
  - Libido increased [Unknown]
  - Fatigue [Unknown]
  - Weight abnormal [Unknown]
  - Hypersomnia [Unknown]
